FAERS Safety Report 5029050-1 (Version None)
Quarter: 2006Q2

REPORT INFORMATION
  Report Type: 
  Country: None (occurrence: None)
  Receive Date: 20060613
  Receipt Date: 20060531
  Transmission Date: 20061013
  Serious: Yes (Hospitalization)
  Sender: FDA-Public Use
  Company Number: APP200600147

PATIENT
  Age: 26 Year
  Sex: Male

DRUGS (2)
  1. CHORIONIC GONADORTOPIN INJ [Suspect]
     Indication: INFERTILITY
     Dosage: 5000 IU
  2. MENOTROPHIN (MENOTROPHIN) [Suspect]
     Indication: INFERTILITY

REACTIONS (4)
  - DRUG EXPOSURE DURING PREGNANCY [None]
  - OVARIAN TORSION [None]
  - POLYCYSTIC OVARIES [None]
  - PREGNANCY [None]
